FAERS Safety Report 8799930 (Version 1)
Quarter: 2012Q4

REPORT INFORMATION
  Report Type: Spontaneous
  Country: US (occurrence: None)
  Receive Date: 20120918
  Receipt Date: 20120918
  Transmission Date: 20130627
  Serious: Yes (Life-Threatening, Hospitalization)
  Sender: FDA-Public Use
  Company Number: None

PATIENT
  Age: 86 Year
  Sex: Female

DRUGS (1)
  1. FORTEO [Suspect]
     Dosage: 20mcg daily SQ
     Route: 058
     Dates: start: 20120201, end: 20120826

REACTIONS (3)
  - Dizziness [None]
  - Confusional state [None]
  - Disturbance in attention [None]
